FAERS Safety Report 8511453-1 (Version None)
Quarter: 2012Q3

REPORT INFORMATION
  Report Type: 
  Country: None (occurrence: None)
  Receive Date: 20120716
  Receipt Date: 20120709
  Transmission Date: 20120928
  Serious: Yes (Hospitalization, Other)
  Sender: FDA-Public Use
  Company Number: US-PFIZER INC-2012120805

PATIENT
  Sex: Female
  Weight: 57.143 kg

DRUGS (6)
  1. ACCURETIC [Suspect]
     Indication: HYPERTENSION
     Dosage: QUINAPRIL/ HYDROCHLOROTHIAZIDE 20/12.5 MG, 1X/DAY
     Route: 048
     Dates: start: 20100928, end: 20120501
  2. ACETAMINOPHEN [Concomitant]
     Indication: BACK DISORDER
     Dosage: UNK, AS NEEDED
  3. HYDROCODONE [Concomitant]
     Indication: BACK DISORDER
     Dosage: UNK
  4. ACETAMINOPHEN [Concomitant]
     Indication: INTERVERTEBRAL DISC DEGENERATION
  5. TOPROL-XL [Concomitant]
     Indication: HYPERTENSION
     Dosage: 25 MG, 1 TABLET PM, DAILY
  6. HYDROCODONE [Concomitant]
     Indication: INTERVERTEBRAL DISC DEGENERATION

REACTIONS (5)
  - HYPERTENSION [None]
  - SYNCOPE [None]
  - VERTIGO [None]
  - HYPONATRAEMIA [None]
  - ELECTROLYTE IMBALANCE [None]
